FAERS Safety Report 12528088 (Version 5)
Quarter: 2016Q4

REPORT INFORMATION
  Report Type: Spontaneous
  Country: SE (occurrence: SE)
  Receive Date: 20160705
  Receipt Date: 20161024
  Transmission Date: 20170207
  Serious: Yes (Other)
  Sender: FDA-Public Use
  Company Number: SE-TAKEDA-2016TUS011003

PATIENT
  Age: 56 Year
  Sex: Female
  Weight: 61 kg

DRUGS (4)
  1. ENTYVIO [Suspect]
     Active Substance: VEDOLIZUMAB
     Indication: COLITIS ULCERATIVE
     Dosage: UNK
     Route: 065
     Dates: start: 20160120, end: 20160428
  2. ENTYVIO [Suspect]
     Active Substance: VEDOLIZUMAB
     Indication: COLITIS
  3. PREDNISOLONE CLYSMA [Concomitant]
     Dosage: UNK
  4. COLIFOAM [Concomitant]
     Active Substance: HYDROCORTISONE
     Dosage: UNK
     Route: 054

REACTIONS (4)
  - Hypoaesthesia [Not Recovered/Not Resolved]
  - Off label use [Unknown]
  - White matter lesion [Not Recovered/Not Resolved]
  - Hypoaesthesia oral [Recovered/Resolved with Sequelae]

NARRATIVE: CASE EVENT DATE: 20160504
